FAERS Safety Report 25486650 (Version 1)
Quarter: 2025Q2

REPORT INFORMATION
  Report Type: Spontaneous
  Country: RO (occurrence: RO)
  Receive Date: 20250627
  Receipt Date: 20250627
  Transmission Date: 20250717
  Serious: Yes (Life-Threatening, Hospitalization, Other)
  Sender: TEVA
  Company Number: RO-TEVA-VS-3344153

PATIENT
  Age: 41 Year
  Sex: Female

DRUGS (6)
  1. MYCOPHENOLATE MOFETIL [Suspect]
     Active Substance: MYCOPHENOLATE MOFETIL
     Indication: Immune-mediated hepatitis
     Route: 065
  2. MYCOPHENOLATE MOFETIL [Suspect]
     Active Substance: MYCOPHENOLATE MOFETIL
     Indication: Immune-mediated hepatitis
     Route: 065
  3. NIVOLUMAB [Suspect]
     Active Substance: NIVOLUMAB
     Indication: Malignant melanoma
     Route: 065
     Dates: start: 202209
  4. METHYLPREDNISOLONE [Concomitant]
     Active Substance: METHYLPREDNISOLONE
     Indication: Immune-mediated hepatitis
     Dosage: IN DIVIDED DOSES
     Route: 042
  5. METHYLPREDNISOLONE [Concomitant]
     Active Substance: METHYLPREDNISOLONE
     Indication: Immune-mediated hepatitis
     Dosage: INCREASED
     Route: 042
  6. IPILIMUMAB [Suspect]
     Active Substance: IPILIMUMAB
     Indication: Malignant melanoma
     Route: 065
     Dates: start: 202209

REACTIONS (2)
  - Immune-mediated hepatitis [Unknown]
  - Leukopenia [Unknown]
